FAERS Safety Report 7016738-6 (Version None)
Quarter: 2010Q3

REPORT INFORMATION
  Report Type: 
  Country: None (occurrence: None)
  Receive Date: 20100927
  Receipt Date: 20100922
  Transmission Date: 20110219
  Serious: Yes (Other)
  Sender: FDA-Public Use
  Company Number: US-ROXANE LABORATORIES, INC.-2010-RO-01262RO

PATIENT
  Age: 80 Year
  Sex: Female

DRUGS (2)
  1. NAPROXEN [Suspect]
     Indication: ARTHRALGIA
     Route: 048
  2. FOSINOPRIL SODIUM [Suspect]
     Indication: HYPERTENSION
     Dosage: 40 MG
     Route: 048

REACTIONS (1)
  - PERIORBITAL OEDEMA [None]
